FAERS Safety Report 7609180-8 (Version None)
Quarter: 2011Q3

REPORT INFORMATION
  Report Type: 
  Country: None (occurrence: None)
  Receive Date: 20110714
  Receipt Date: 20110704
  Transmission Date: 20111222
  Serious: Yes (Hospitalization)
  Sender: FDA-Public Use
  Company Number: NL-MEDIMMUNE-MEDI-0012953

PATIENT
  Sex: Female
  Weight: 8 kg

DRUGS (3)
  1. SYNAGIS [Suspect]
     Route: 030
     Dates: start: 20100210, end: 20100210
  2. SYNAGIS [Suspect]
     Route: 030
     Dates: start: 20110310, end: 20110310
  3. SYNAGIS [Suspect]
     Route: 030
     Dates: start: 20101021, end: 20101021

REACTIONS (10)
  - GASTROOESOPHAGEAL REFLUX DISEASE [None]
  - ASPIRATION [None]
  - OXYGEN SATURATION DECREASED [None]
  - DYSPNOEA [None]
  - PYREXIA [None]
  - RESPIRATORY SYNCYTIAL VIRUS TEST POSITIVE [None]
  - WHEEZING [None]
  - RESPIRATORY TRACT INFECTION [None]
  - NASOPHARYNGITIS [None]
  - COUGH [None]
